FAERS Safety Report 8866712 (Version 1)
Quarter: 2012Q4

REPORT INFORMATION
  Report Type: 
  Country: US (occurrence: US)
  Receive Date: 20121025
  Receipt Date: 20121025
  Transmission Date: 20130627
  Serious: No
  Sender: FDA-Public Use
  Company Number: US-AMGEN-USASP2012012990

PATIENT
  Age: 62 Year
  Sex: Female
  Weight: 66.67 kg

DRUGS (7)
  1. ENBREL [Suspect]
     Indication: PRODUCT USED FOR UNKNOWN INDICATION
     Dosage: 50 mg, qwk
     Route: 058
  2. BONIVA [Concomitant]
     Dosage: 150 mg, UNK
     Route: 048
  3. HUMIRA [Concomitant]
     Dosage: 40 mg, UNK
     Route: 058
  4. VITAMIN E                          /00110501/ [Concomitant]
  5. CELEXA                             /00582602/ [Concomitant]
     Dosage: 100 mg, UNK
     Route: 048
  6. VITAMIN D3 [Concomitant]
     Dosage: UNK
  7. CALCIUM CITRATE + D [Concomitant]
     Route: 048

REACTIONS (1)
  - Drug ineffective [Unknown]
